FAERS Safety Report 24727670 (Version 3)
Quarter: 2025Q2

REPORT INFORMATION
  Report Type: Spontaneous
  Country: US (occurrence: US)
  Receive Date: 20241212
  Receipt Date: 20250609
  Transmission Date: 20250717
  Serious: Yes (Other)
  Sender: SANOFI AVENTIS
  Company Number: US-SA-2024SA364936

PATIENT
  Age: 10 Year
  Sex: Male

DRUGS (1)
  1. DUPIXENT [Suspect]
     Active Substance: DUPILUMAB
     Indication: Eosinophilic oesophagitis
     Dosage: 200 MG, QOW
     Route: 058

REACTIONS (4)
  - Oesophageal food impaction [Recovered/Resolved]
  - Vomiting [Unknown]
  - Fear of injection [Unknown]
  - Injection site pain [Recovered/Resolved]
